FAERS Safety Report 6096079-4 (Version None)
Quarter: 2009Q1

REPORT INFORMATION
  Report Type: 
  Country: None (occurrence: None)
  Receive Date: 20090227
  Receipt Date: 20080827
  Transmission Date: 20090719
  Serious: No
  Sender: FDA-Public Use
  Company Number: A0744714A

PATIENT
  Sex: Female

DRUGS (4)
  1. LAMICTAL [Suspect]
     Indication: DEPRESSION
     Dosage: 100MG PER DAY
     Route: 048
     Dates: start: 20080301, end: 20080820
  2. SYNTHROID [Concomitant]
  3. LEXAPRO [Concomitant]
     Dates: end: 20080701
  4. EFFEXOR [Concomitant]
     Dates: end: 20080701

REACTIONS (3)
  - CRYING [None]
  - DRUG INEFFECTIVE [None]
  - WEIGHT INCREASED [None]
